FAERS Safety Report 6844540-4 (Version None)
Quarter: 2010Q3

REPORT INFORMATION
  Report Type: 
  Country: None (occurrence: None)
  Receive Date: 20100715
  Receipt Date: 20100701
  Transmission Date: 20110219
  Serious: Yes (Hospitalization, Other)
  Sender: FDA-Public Use
  Company Number: PHHY2010CA38797

PATIENT
  Sex: Female

DRUGS (4)
  1. ALISKIREN ALI+ [Suspect]
     Indication: HYPERTENSION
     Dosage: 300 MG DAILY
     Route: 048
     Dates: start: 20090929, end: 20100513
  2. ALISKIREN ALI+ [Suspect]
     Dosage: UNK
     Dates: end: 20100517
  3. CALCIUM CHANNEL BLOCKERS [Concomitant]
  4. ADALAT CC [Concomitant]
     Dosage: 30 MG DAILY

REACTIONS (3)
  - ATRIAL FIBRILLATION [None]
  - HYPERTENSIVE CRISIS [None]
  - MICROALBUMINURIA [None]
